FAERS Safety Report 8550128-X (Version None)
Quarter: 2012Q2

REPORT INFORMATION
  Report Type: 
  Country: None (occurrence: None)
  Receive Date: 20120416
  Receipt Date: 20090821
  Transmission Date: 20120825
  Serious: No
  Sender: FDA-Public Use
  Company Number: PHEH2009US09539

PATIENT

DRUGS (1)
  1. DIOVAN [Suspect]

REACTIONS (2)
  - DIZZINESS POSTURAL [None]
  - HYPOTENSION [None]
